FAERS Safety Report 7775125-3 (Version None)
Quarter: 2011Q3

REPORT INFORMATION
  Report Type: 
  Country: None (occurrence: None)
  Receive Date: 20110923
  Receipt Date: 20110914
  Transmission Date: 20111222
  Serious: Yes (Hospitalization)
  Sender: FDA-Public Use
  Company Number: US-JNJFOC-20110403553

PATIENT
  Sex: Male
  Weight: 52.7 kg

DRUGS (10)
  1. ALLEGRA [Concomitant]
  2. OMEPRAZOLE [Concomitant]
  3. SINGULAIR [Concomitant]
  4. HUMIRA [Concomitant]
     Dates: start: 20100930
  5. REMICADE [Suspect]
     Indication: INFLAMMATORY BOWEL DISEASE
     Route: 042
     Dates: start: 20100722, end: 20100916
  6. PROBIOTICS [Concomitant]
  7. METHOTREXATE [Concomitant]
  8. PREDNISONE [Concomitant]
  9. HUMIRA [Concomitant]
     Dates: start: 20110318
  10. FOLIC ACID [Concomitant]

REACTIONS (1)
  - PYREXIA [None]
